FAERS Safety Report 23532107 (Version 7)
Quarter: 2024Q2

REPORT INFORMATION
  Report Type: Spontaneous
  Country: IE (occurrence: IE)
  Receive Date: 20240216
  Receipt Date: 20240614
  Transmission Date: 20240715
  Serious: Yes (Hospitalization, Other)
  Sender: FDA-Public Use
  Company Number: IE-MYLANLABS-2024M1014230

PATIENT
  Age: 76 Year
  Sex: Female

DRUGS (4)
  1. CLOZARIL [Suspect]
     Active Substance: CLOZAPINE
     Indication: Schizophrenia
     Dosage: 50 MILLIGRAM IN THE MORNING AND 100 MILLIGRAM AT NIGHT, BID (TWICE DAILY)
     Route: 048
     Dates: start: 20230621
  2. ZOPICLONE [Concomitant]
     Active Substance: ZOPICLONE
     Dosage: 7.5 MILLIGRAM, QD (ONCE DAILY) AT NIGHT
     Route: 048
  3. PROCYCLIDINE [Concomitant]
     Active Substance: PROCYCLIDINE
     Dosage: 2.5 MILLIGRAM, QD (ONCE IN THE MORNING)
     Route: 048
  4. CLONAZEPAM [Concomitant]
     Active Substance: CLONAZEPAM
     Dosage: 0.25 MILLIGRAM, BID (TWICE DAILY AS NEEDED)
     Route: 048

REACTIONS (13)
  - Urinary tract infection [Unknown]
  - Cerebrovascular accident [Unknown]
  - Cholecystitis acute [Unknown]
  - Sepsis [Unknown]
  - Fall [Unknown]
  - Myocardial infarction [Unknown]
  - Humerus fracture [Unknown]
  - Thrombocytopenia [Recovered/Resolved]
  - Neutrophilia [Recovered/Resolved]
  - Differential white blood cell count abnormal [Unknown]
  - Eosinophil count decreased [Recovered/Resolved]
  - Haemoglobin decreased [Not Recovered/Not Resolved]
  - White blood cell count decreased [Recovered/Resolved]

NARRATIVE: CASE EVENT DATE: 20240211
